FAERS Safety Report 7790625-8 (Version None)
Quarter: 2011Q3

REPORT INFORMATION
  Report Type: 
  Country: None (occurrence: None)
  Receive Date: 20110930
  Receipt Date: 20110927
  Transmission Date: 20111222
  Serious: Yes (Hospitalization)
  Sender: FDA-Public Use
  Company Number: IT-ABBOTT-11P-083-0858269-00

PATIENT
  Sex: Male

DRUGS (1)
  1. PROMAZINE HYDROCHLORIDE [Suspect]
     Indication: DEPRESSION
     Dosage: 4G/100ML; 30 MG DAILY
     Route: 048
     Dates: start: 20110608, end: 20110608

REACTIONS (2)
  - OVERDOSE [None]
  - SOPOR [None]
